FAERS Safety Report 11503286 (Version 1)
Quarter: 2015Q3

REPORT INFORMATION
  Report Type: Spontaneous
  Country: US (occurrence: US)
  Receive Date: 20150914
  Receipt Date: 20150914
  Transmission Date: 20151125
  Serious: No
  Sender: FDA-Public Use
  Company Number: US-BAYER-2015-413744

PATIENT
  Age: 8 Year
  Sex: Female
  Weight: 40.36 kg

DRUGS (3)
  1. FLOVENT [Concomitant]
     Active Substance: FLUTICASONE PROPIONATE
  2. RID 1-2-3 SYSTEM [Suspect]
     Active Substance: PIPERONYL BUTOXIDE\PYRETHRUM EXTRACT
     Indication: LICE INFESTATION
     Dosage: UNK
     Dates: start: 20150830, end: 20150830
  3. MIRALAX [Suspect]
     Active Substance: POLYETHYLENE GLYCOL 3350
     Dosage: 0.5 DF, ONCE
     Route: 048
     Dates: start: 2011

REACTIONS (3)
  - Product use issue [Unknown]
  - Product use issue [Unknown]
  - Product use issue [Unknown]

NARRATIVE: CASE EVENT DATE: 2011
